FAERS Safety Report 21111503 (Version 1)
Quarter: 2022Q3

REPORT INFORMATION
  Report Type: Spontaneous
  Country: IR (occurrence: IR)
  Receive Date: 20220721
  Receipt Date: 20220721
  Transmission Date: 20221027
  Serious: Yes (Hospitalization)
  Sender: FDA-Public Use
  Company Number: IR-MYLANLABS-2022M1079559

PATIENT
  Age: 30 Year
  Sex: Female

DRUGS (7)
  1. LOPINAVIR\RITONAVIR [Suspect]
     Active Substance: LOPINAVIR\RITONAVIR
     Indication: COVID-19
     Dosage: UNK, QD
     Route: 065
     Dates: start: 20200402, end: 20200416
  2. AZITHROMYCIN [Suspect]
     Active Substance: AZITHROMYCIN
     Indication: COVID-19
     Dosage: 500 MILLIGRAM; LOADING DOSE
     Route: 065
     Dates: start: 202004, end: 202004
  3. AZITHROMYCIN [Suspect]
     Active Substance: AZITHROMYCIN
     Dosage: 250 MILLIGRAM, QD
     Route: 065
     Dates: start: 202004, end: 20200407
  4. METHYLPREDNISOLONE [Suspect]
     Active Substance: METHYLPREDNISOLONE
     Indication: COVID-19
     Dosage: 500 MILLIGRAM, BID
     Route: 065
     Dates: start: 202004
  5. HYDROCORTISONE [Suspect]
     Active Substance: HYDROCORTISONE
     Indication: COVID-19
     Dosage: UNK; DIVIDED DOSES
     Route: 042
     Dates: start: 20200402, end: 20200502
  6. COVID-19 CONVALESCENT PLASMA [Suspect]
     Active Substance: COVID-19 CONVALESCENT PLASMA
     Indication: COVID-19
     Dosage: UNK; TWO SESSIONS (500 CC FOR EACH) ON CONSECUTIVE DAYS OF HOSPITAL DAY (HD) 10 AND 11
     Route: 065
     Dates: start: 202004, end: 202004
  7. ENOXAPARIN [Suspect]
     Active Substance: ENOXAPARIN
     Indication: Prophylaxis
     Dosage: 60 MILLIGRAM, QD
     Route: 058
     Dates: start: 20200402, end: 20200502

REACTIONS (3)
  - Drug ineffective for unapproved indication [Unknown]
  - Off label use [Unknown]
  - Maternal exposure during pregnancy [Unknown]
